FAERS Safety Report 7985373-5 (Version None)
Quarter: 2011Q4

REPORT INFORMATION
  Report Type: 
  Country: None (occurrence: None)
  Receive Date: 20111216
  Receipt Date: 20111130
  Transmission Date: 20120403
  Serious: Yes (Hospitalization)
  Sender: FDA-Public Use
  Company Number: FR-ROCHE-1019595

PATIENT
  Sex: Female
  Weight: 56.069 kg

DRUGS (6)
  1. SINGULAIR [Concomitant]
     Dates: start: 20030101, end: 20110701
  2. VENTOLIN [Concomitant]
     Dates: start: 20030101
  3. FLUTICASONE PROPIONATE/SALMETEROL [Concomitant]
     Dates: end: 20110601
  4. XOLAIR [Suspect]
     Indication: ASTHMA
     Dates: start: 20080201, end: 20110601
  5. DILATRANE [Concomitant]
     Dates: start: 20030101, end: 20110701
  6. DESLORATADINE [Concomitant]
     Dates: start: 20030101, end: 20110701

REACTIONS (2)
  - MATERNAL EXPOSURE DURING PREGNANCY [None]
  - ASTHMA [None]
